FAERS Safety Report 9943504 (Version 1)
Quarter: 2014Q1

REPORT INFORMATION
  Report Type: Report from Study
  Country: US (occurrence: US)
  Receive Date: 20140303
  Receipt Date: 20140303
  Transmission Date: 20141002
  Serious: No
  Sender: FDA-Public Use
  Company Number: US-ABBVIE-13P-163-1048332-00

PATIENT
  Age: 55 Year
  Sex: Female

DRUGS (13)
  1. HUMIRA [Suspect]
     Indication: RHEUMATOID ARTHRITIS
     Dosage: INITIAL DOSE
     Dates: start: 20130205
  2. TRIAM/HCTZ [Concomitant]
     Indication: BLOOD PRESSURE
  3. PREDNISONE [Concomitant]
     Indication: RHEUMATOID ARTHRITIS
  4. DIOVAN [Concomitant]
     Indication: BLOOD PRESSURE
  5. LEVOTHYROXINE [Concomitant]
     Indication: THYROID DISORDER
  6. METHOTREXATE [Concomitant]
     Indication: RHEUMATOID ARTHRITIS
     Dosage: 8/WEEK
  7. FOLIC ACID [Concomitant]
     Indication: VITAMIN SUPPLEMENTATION
  8. LODIPINE [Concomitant]
     Indication: BLOOD PRESSURE
  9. METFORMIN [Concomitant]
     Indication: BLOOD GLUCOSE INCREASED
  10. VICTOZA [Concomitant]
     Indication: PANCREATIC DISORDER
  11. ALENDRONATE [Concomitant]
     Indication: RHEUMATOID ARTHRITIS
  12. MELOXICAM [Concomitant]
     Indication: RHEUMATOID ARTHRITIS
  13. SIMVASTATIN [Concomitant]
     Indication: BLOOD CHOLESTEROL

REACTIONS (2)
  - Injection site pain [Recovered/Resolved]
  - Injection site reaction [Recovered/Resolved]
